FAERS Safety Report 12799589 (Version 1)
Quarter: 2016Q3

REPORT INFORMATION
  Report Type: Report from Study
  Country: US (occurrence: US)
  Receive Date: 20160930
  Receipt Date: 20160930
  Transmission Date: 20161109
  Serious: Yes (Other)
  Sender: FDA-Public Use
  Company Number: US-AMGEN-USASL2016133626

PATIENT

DRUGS (1)
  1. KYPROLIS [Suspect]
     Active Substance: CARFILZOMIB
     Indication: PRODUCT USED FOR UNKNOWN INDICATION
     Dosage: UNK
     Route: 065

REACTIONS (34)
  - Neutropenia [Unknown]
  - Trigeminal nerve disorder [Unknown]
  - Spinal pain [Unknown]
  - Snoring [Unknown]
  - Dyspnoea [Unknown]
  - Monoclonal gammopathy [Unknown]
  - Cancer pain [Unknown]
  - Pneumonia [Unknown]
  - Pleural effusion [Unknown]
  - Cough [Unknown]
  - Viral infection [Unknown]
  - Major depression [Unknown]
  - Adverse drug reaction [Unknown]
  - Constipation [Unknown]
  - Myalgia [Unknown]
  - Paraesthesia [Unknown]
  - Nervous system disorder [Unknown]
  - Infection [Unknown]
  - Chest pain [Unknown]
  - Large intestine benign neoplasm [Unknown]
  - Bone disorder [Unknown]
  - Gastrooesophageal reflux disease [Unknown]
  - Pain in jaw [Unknown]
  - Anaemia [Unknown]
  - Hypokalaemia [Unknown]
  - Oral candidiasis [Unknown]
  - Supraventricular tachycardia [Unknown]
  - Palpitations [Unknown]
  - Spinal cord compression [Unknown]
  - Attention deficit/hyperactivity disorder [Unknown]
  - Malaise [Unknown]
  - Asthma [Unknown]
  - Abdominal pain upper [Unknown]
  - Influenza [Unknown]

NARRATIVE: CASE EVENT DATE: 20160224
